FAERS Safety Report 18273877 (Version 1)
Quarter: 2020Q3

REPORT INFORMATION
  Report Type: Spontaneous
  Country: CA (occurrence: CA)
  Receive Date: 20200916
  Receipt Date: 20200916
  Transmission Date: 20201103
  Serious: Yes (Other)
  Sender: FDA-Public Use
  Company Number: CA-ALVOGEN-2020-ALVOGEN-114314

PATIENT
  Age: 54 Year
  Sex: Male

DRUGS (12)
  1. QUETIAPINE. [Interacting]
     Active Substance: QUETIAPINE
     Indication: BIPOLAR DISORDER
     Route: 048
  2. SUSTIVA [Interacting]
     Active Substance: EFAVIRENZ
     Indication: PRODUCT USED FOR UNKNOWN INDICATION
     Route: 048
  3. CLONAZEPAM. [Interacting]
     Active Substance: CLONAZEPAM
     Indication: BIPOLAR DISORDER
  4. ENFUVIRTIDE. [Concomitant]
     Active Substance: ENFUVIRTIDE
     Indication: PRODUCT USED FOR UNKNOWN INDICATION
  5. RALTEGRAVIR POTASSIUM [Interacting]
     Active Substance: RALTEGRAVIR POTASSIUM
     Indication: HIV INFECTION
     Route: 048
  6. SERTRALINE HYDROCHLORIDE. [Interacting]
     Active Substance: SERTRALINE HYDROCHLORIDE
     Indication: BIPOLAR DISORDER
  7. KALETRA [Interacting]
     Active Substance: LOPINAVIR\RITONAVIR
     Indication: HIV INFECTION
  8. ZOPICLONE [Interacting]
     Active Substance: ZOPICLONE
     Indication: BIPOLAR DISORDER
  9. ATAZANAVIR SULFATE. [Interacting]
     Active Substance: ATAZANAVIR SULFATE
     Indication: HIV INFECTION
  10. LAMIVUDINE. [Interacting]
     Active Substance: LAMIVUDINE
     Indication: HIV INFECTION
  11. VALPROIC ACID. [Interacting]
     Active Substance: VALPROIC ACID
     Indication: BIPOLAR DISORDER
  12. BUPROPION. [Suspect]
     Active Substance: BUPROPION
     Indication: BIPOLAR DISORDER

REACTIONS (2)
  - Drug interaction [Recovered/Resolved]
  - Depression [Recovered/Resolved]
